FAERS Safety Report 5131016-8 (Version None)
Quarter: 2006Q3

REPORT INFORMATION
  Report Type: 
  Country: None (occurrence: None)
  Receive Date: 20060829
  Receipt Date: 20060521
  Transmission Date: 20061208
  Serious: Yes (Hospitalization)
  Sender: FDA-Public Use
  Company Number: CIP06001169

PATIENT
  Age: 39 Year
  Sex: Female

DRUGS (1)
  1. ASACOL [Suspect]

REACTIONS (1)
  - HYPERSENSITIVITY [None]
